FAERS Safety Report 17818635 (Version 1)
Quarter: 2020Q2

REPORT INFORMATION
  Report Type: Report from Study
  Country: DE (occurrence: DE)
  Receive Date: 20200523
  Receipt Date: 20200523
  Transmission Date: 20200714
  Serious: Yes (Hospitalization, Disabling, Other)
  Sender: FDA-Public Use
  Company Number: DE-EXELIXIS-XL18420029764

PATIENT

DRUGS (8)
  1. XL184 [Suspect]
     Active Substance: CABOZANTINIB
     Dosage: 20 MG
     Dates: start: 20191111, end: 20200416
  2. DEXAMETHASONE. [Concomitant]
     Active Substance: DEXAMETHASONE
  3. TILIDIN [Concomitant]
     Active Substance: NALOXONE HYDROCHLORIDE\TILIDINE HYDROCHLORIDE
  4. CELEBREX [Concomitant]
     Active Substance: CELECOXIB
  5. XL184 [Suspect]
     Active Substance: CABOZANTINIB
     Indication: RENAL CELL CARCINOMA
     Dosage: 20 MG
     Dates: start: 20190315, end: 20191103
  6. COLCHYSAT [Concomitant]
     Active Substance: COLCHICUM AUTUMNALE FLOWER\HERBALS
  7. NYSTATIN HOLSTEN [Concomitant]
  8. LOPERAMIDE [Concomitant]
     Active Substance: LOPERAMIDE

REACTIONS (11)
  - Pain [Unknown]
  - Nasopharyngitis [Recovered/Resolved]
  - Mucosal inflammation [Not Recovered/Not Resolved]
  - Pain [Recovering/Resolving]
  - Gout [Unknown]
  - Hypertension [Recovering/Resolving]
  - Diarrhoea [Recovering/Resolving]
  - Toe amputation [Unknown]
  - Weight decreased [Not Recovered/Not Resolved]
  - Fatigue [Not Recovered/Not Resolved]
  - Dysgeusia [Not Recovered/Not Resolved]

NARRATIVE: CASE EVENT DATE: 20191109
